FAERS Safety Report 8224936 (Version 2)
Quarter: 2013Q4

REPORT INFORMATION
  Report Type: Spontaneous
  Country: US (occurrence: US)
  Receive Date: 20111103
  Receipt Date: 20131218
  Transmission Date: 20140711
  Serious: Yes (Life-Threatening, Other)
  Sender: FDA-Public Use
  Company Number: US-BAYER-2011-106011

PATIENT
  Age: 26 Year
  Sex: Female

DRUGS (3)
  1. YASMIN [Suspect]
  2. OCELLA [Suspect]
  3. YAZ [Suspect]

REACTIONS (8)
  - Gallbladder non-functioning [None]
  - Cholecystitis chronic [None]
  - Organ failure [None]
  - Injury [None]
  - Pain [None]
  - General physical health deterioration [None]
  - Anxiety [None]
  - Anhedonia [None]
